FAERS Safety Report 4915101-9 (Version None)
Quarter: 2006Q1

REPORT INFORMATION
  Report Type: 
  Country: None (occurrence: None)
  Receive Date: 20060215
  Receipt Date: 20060215
  Transmission Date: 20060701
  Serious: Yes (Other)
  Sender: FDA-Public Use
  Company Number: None

PATIENT
  Sex: Male
  Weight: 106.5953 kg

DRUGS (1)
  1. PRAVACHOL [Suspect]
     Dosage: 80 MG PO QD
     Route: 048

REACTIONS (1)
  - MUSCLE SPASMS [None]
